FAERS Safety Report 4472007-X (Version None)
Quarter: 2004Q4

REPORT INFORMATION
  Report Type: 
  Country: None (occurrence: None)
  Receive Date: 20041007
  Receipt Date: 20040924
  Transmission Date: 20050328
  Serious: No
  Sender: FDA-Public Use
  Company Number: 2004UW20300

PATIENT
  Age: 76 Year
  Sex: Female

DRUGS (6)
  1. ATACAND [Suspect]
     Dosage: 8 MG DAILY PO
     Route: 048
  2. BROMAZEPAM [Concomitant]
  3. LIPITOR [Concomitant]
  4. METOPROLOL [Concomitant]
  5. NORVASC [Concomitant]
  6. RIVASA [Concomitant]

REACTIONS (4)
  - BRADYCARDIA [None]
  - DRUG INTERACTION [None]
  - RENAL FAILURE ACUTE [None]
  - SYNCOPE [None]
